FAERS Safety Report 22599933 (Version 1)
Quarter: 2023Q2

REPORT INFORMATION
  Report Type: Spontaneous
  Country: CN (occurrence: CN)
  Receive Date: 20230614
  Receipt Date: 20230614
  Transmission Date: 20230722
  Serious: Yes (Life-Threatening, Hospitalization, Other)
  Sender: FDA-Public Use
  Company Number: CN-PFIZER INC-PV202300103363

PATIENT
  Sex: Male
  Weight: 82 kg

DRUGS (6)
  1. CYTARABINE [Suspect]
     Active Substance: CYTARABINE
     Indication: Neoplasm
     Dosage: 100 MG, 2X/DAY
     Dates: start: 20230517, end: 20230524
  2. CYTARABINE [Suspect]
     Active Substance: CYTARABINE
     Dosage: 35 MG, 1X/DAY
     Route: 037
     Dates: start: 20230519, end: 20230519
  3. METHOTREXATE SODIUM [Suspect]
     Active Substance: METHOTREXATE SODIUM
     Indication: Neoplasm
     Dosage: 15 MG, 1X/DAY
     Route: 037
     Dates: start: 20230519, end: 20230519
  4. MITOXANTRONE HYDROCHLORIDE [Suspect]
     Active Substance: MITOXANTRONE HYDROCHLORIDE
     Indication: Neoplasm
     Dosage: 20 MG, 1X/DAY
     Route: 041
     Dates: start: 20230517, end: 20230517
  5. DEXAMETHASONE SODIUM PHOSPHATE [Concomitant]
     Active Substance: DEXAMETHASONE SODIUM PHOSPHATE
     Indication: Chemotherapy
     Dosage: 3 MG, 1X/DAY
     Route: 042
     Dates: start: 20230529, end: 20230529
  6. GRANULOCYTE COLONY-STIMULATING FACTOR NOS [Concomitant]
     Active Substance: GRANULOCYTE COLONY-STIMULATING FACTOR NOS
     Indication: Granulocytes abnormal
     Dosage: 200 UG, 1X/DAY
     Route: 058
     Dates: start: 20230526, end: 20230526

REACTIONS (1)
  - Myelosuppression [Recovering/Resolving]

NARRATIVE: CASE EVENT DATE: 20230529
